FAERS Safety Report 18874840 (Version 1)
Quarter: 2021Q1

REPORT INFORMATION
  Report Type: Spontaneous
  Country: CN (occurrence: CN)
  Receive Date: 20210210
  Receipt Date: 20210210
  Transmission Date: 20210420
  Serious: Yes (Other)
  Sender: FDA-Public Use
  Company Number: CN-ASTRAZENECA-2021A040269

PATIENT
  Age: 70 Year
  Sex: Female

DRUGS (3)
  1. ERLOTINIB [Concomitant]
     Active Substance: ERLOTINIB
     Indication: NON-SMALL CELL LUNG CANCER
  2. AFATINIB [Concomitant]
     Active Substance: AFATINIB
     Indication: NON-SMALL CELL LUNG CANCER
  3. OSIMERTINIB. [Suspect]
     Active Substance: OSIMERTINIB
     Indication: NON-SMALL CELL LUNG CANCER
     Route: 048

REACTIONS (2)
  - Drug resistance [Unknown]
  - EGFR gene mutation [Unknown]
